FAERS Safety Report 24362029 (Version 1)
Quarter: 2024Q3

REPORT INFORMATION
  Report Type: Spontaneous
  Country: CN (occurrence: CN)
  Receive Date: 20240925
  Receipt Date: 20240925
  Transmission Date: 20241016
  Serious: Yes (Other)
  Sender: ASTELLAS
  Company Number: CN-ASTELLAS-2024-AER-007547

PATIENT
  Age: 82 Year
  Sex: Female

DRUGS (3)
  1. PADCEV [Suspect]
     Active Substance: ENFORTUMAB VEDOTIN-EJFV
     Indication: Transitional cell carcinoma metastatic
     Dosage: CYCLE 1 TO 4
     Route: 042
     Dates: start: 202405
  2. PADCEV [Suspect]
     Active Substance: ENFORTUMAB VEDOTIN-EJFV
     Dosage: CYCLE 5
     Route: 042
     Dates: start: 2024
  3. TRAMADOL [Concomitant]
     Active Substance: TRAMADOL\TRAMADOL HYDROCHLORIDE
     Indication: Pain
     Route: 065

REACTIONS (12)
  - Malignant neoplasm progression [Unknown]
  - Pain [Unknown]
  - Alopecia [Unknown]
  - Decreased appetite [Unknown]
  - Hypoaesthesia [Unknown]
  - Skin discolouration [Unknown]
  - Yellow skin [Unknown]
  - Dry skin [Unknown]
  - Rash [Recovering/Resolving]
  - Skin exfoliation [Recovering/Resolving]
  - Off label use [Unknown]
  - Underdose [Unknown]

NARRATIVE: CASE EVENT DATE: 20240501
